FAERS Safety Report 9461954 (Version 1)
Quarter: 2013Q3

REPORT INFORMATION
  Report Type: Spontaneous
  Country: US (occurrence: None)
  Receive Date: 20130815
  Receipt Date: 20130815
  Transmission Date: 20140515
  Serious: No
  Sender: FDA-Public Use
  Company Number: None

PATIENT
  Sex: Female

DRUGS (1)
  1. TOPAMAX [Suspect]
     Dosage: TABLET, ORAL, 200 MG, LOT# UNKNOWN (CONSUMER STATED SHE WOULD INQUIRE AT PHARMACY)
     Route: 048

REACTIONS (5)
  - Paraesthesia oral [None]
  - Paraesthesia [None]
  - Product odour abnormal [None]
  - Product taste abnormal [None]
  - Product substitution issue [None]
